FAERS Safety Report 9253424 (Version 3)
Quarter: 2013Q3

REPORT INFORMATION
  Report Type: Spontaneous
  Country: US (occurrence: US)
  Receive Date: 20130425
  Receipt Date: 20130920
  Transmission Date: 20140515
  Serious: Yes (Hospitalization, Other)
  Sender: FDA-Public Use
  Company Number: US-BIOGENIDEC-2013BI035481

PATIENT
  Age: 34 Year
  Sex: Female

DRUGS (1)
  1. TYSABRI [Suspect]
     Indication: MULTIPLE SCLEROSIS
     Route: 042
     Dates: start: 20121130, end: 201301

REACTIONS (4)
  - Ectopic pregnancy [Recovered/Resolved]
  - Procedural haemorrhage [Recovered/Resolved]
  - Placenta accreta [Unknown]
  - Intra-abdominal haemorrhage [Recovered/Resolved]
